FAERS Safety Report 26106427 (Version 1)
Quarter: 2025Q4

REPORT INFORMATION
  Report Type: Spontaneous
  Country: US (occurrence: US)
  Receive Date: 20251201
  Receipt Date: 20251201
  Transmission Date: 20260118
  Serious: Yes (Other)
  Sender: ROCHE
  Company Number: US-ROCHE-10000447699

PATIENT
  Age: 56 Year
  Sex: Male

DRUGS (8)
  1. ATEZOLIZUMAB [Suspect]
     Active Substance: ATEZOLIZUMAB
     Indication: Small cell lung cancer
     Route: 065
  2. METFORMIN [Concomitant]
     Active Substance: METFORMIN HYDROCHLORIDE
  3. KETOCONAZOLE [Concomitant]
     Active Substance: KETOCONAZOLE
  4. METYRAPONE [Concomitant]
     Active Substance: METYRAPONE
  5. MIFEPRISTONE [Concomitant]
     Active Substance: MIFEPRISTONE
  6. CISPLATIN [Concomitant]
     Active Substance: CISPLATIN
  7. ETOPOSIDE [Concomitant]
     Active Substance: ETOPOSIDE
  8. PREDNISONE [Concomitant]
     Active Substance: PREDNISONE

REACTIONS (2)
  - Immune-mediated hepatitis [Unknown]
  - Drug-induced liver injury [Unknown]
